FAERS Safety Report 25226573 (Version 3)
Quarter: 2025Q2

REPORT INFORMATION
  Report Type: Report from Study
  Country: RU (occurrence: RU)
  Receive Date: 20250422
  Receipt Date: 20250502
  Transmission Date: 20250717
  Serious: Yes (Other)
  Sender: IPSEN
  Company Number: RU-IPSEN Group, Research and Development-2025-08174

PATIENT
  Sex: Male

DRUGS (5)
  1. DYSPORT [Suspect]
     Active Substance: ABOBOTULINUMTOXINA
     Indication: Detrusor sphincter dyssynergia
     Route: 050
  2. DYSPORT [Suspect]
     Active Substance: ABOBOTULINUMTOXINA
     Indication: Off label use
  3. DYSPORT [Suspect]
     Active Substance: ABOBOTULINUMTOXINA
     Indication: Autonomic dysreflexia
  4. DYSPORT [Suspect]
     Active Substance: ABOBOTULINUMTOXINA
     Indication: Dysuria
  5. DYSPORT [Suspect]
     Active Substance: ABOBOTULINUMTOXINA
     Indication: Fowler^s syndrome

REACTIONS (3)
  - Neuromuscular toxicity [Unknown]
  - Haemorrhage [Unknown]
  - Off label use [Unknown]
